FAERS Safety Report 17827228 (Version 3)
Quarter: 2021Q1

REPORT INFORMATION
  Report Type: Report from Study
  Country: US (occurrence: US)
  Receive Date: 20200527
  Receipt Date: 20210212
  Transmission Date: 20210419
  Serious: Yes (Other)
  Sender: FDA-Public Use
  Company Number: US-B.I. PHARMACEUTICALS,INC./RIDGEFIELD-2020-BI-007344

PATIENT
  Age: 70 Year
  Sex: Female

DRUGS (2)
  1. OFEV [Suspect]
     Active Substance: NINTEDANIB
     Indication: BRONCHIECTASIS
     Route: 048
     Dates: start: 20200108
  2. OFEV [Suspect]
     Active Substance: NINTEDANIB
     Indication: IDIOPATHIC PULMONARY FIBROSIS

REACTIONS (14)
  - Dyspnoea [Not Recovered/Not Resolved]
  - Pneumonia [Recovered/Resolved]
  - Lung disorder [Recovered/Resolved]
  - Thyroid disorder [Not Recovered/Not Resolved]
  - Pain [Recovered/Resolved]
  - Insomnia [Unknown]
  - Cough [Not Recovered/Not Resolved]
  - Decreased appetite [Unknown]
  - Disturbance in attention [Unknown]
  - Diarrhoea [Recovered/Resolved]
  - Wheezing [Unknown]
  - Asthenia [Unknown]
  - Off label use [Unknown]
  - Diarrhoea [Not Recovered/Not Resolved]
